FAERS Safety Report 6107765-1 (Version None)
Quarter: 2009Q1

REPORT INFORMATION
  Report Type: 
  Country: None (occurrence: None)
  Receive Date: 20090309
  Receipt Date: 20090225
  Transmission Date: 20090719
  Serious: Yes (Death, Life-Threatening, Hospitalization, Disabling)
  Sender: FDA-Public Use
  Company Number: B0549865A

PATIENT
  Age: 5 Month
  Sex: Female
  Weight: 45 kg

DRUGS (7)
  1. ZANTAC [Suspect]
     Route: 065
     Dates: end: 20001024
  2. FRUSEMIDE [Suspect]
     Indication: DRUG USE FOR UNKNOWN INDICATION
     Dosage: 1MG PER DAY
     Route: 065
  3. SPIRONOLACTONE [Suspect]
     Indication: DRUG USE FOR UNKNOWN INDICATION
     Dosage: 3MG PER DAY
     Route: 065
  4. POTASSIUM CHLORIDE [Concomitant]
  5. IV FLUIDS [Concomitant]
  6. DEXTROSE SALINE [Concomitant]
     Dates: start: 20000613
  7. ABDEC [Concomitant]

REACTIONS (22)
  - AGITATION [None]
  - BODY TEMPERATURE INCREASED [None]
  - BREATH ODOUR [None]
  - CARDIAC ARREST [None]
  - CARDIOMEGALY [None]
  - CRYING [None]
  - CYANOSIS [None]
  - DIARRHOEA [None]
  - DRUG ADMINISTRATION ERROR [None]
  - DRUG TOXICITY [None]
  - DYSPNOEA [None]
  - EMOTIONAL DISTRESS [None]
  - FAECES DISCOLOURED [None]
  - INTERCOSTAL RETRACTION [None]
  - LUNG INJURY [None]
  - OVERDOSE [None]
  - OXYGEN SATURATION DECREASED [None]
  - PRODUCTIVE COUGH [None]
  - PYREXIA [None]
  - RESPIRATORY DISTRESS [None]
  - RESTLESSNESS [None]
  - WHEEZING [None]
